FAERS Safety Report 8889359 (Version 1)
Quarter: 2012Q4

REPORT INFORMATION
  Report Type: Spontaneous
  Country: US (occurrence: None)
  Receive Date: 20121102
  Receipt Date: 20121102
  Transmission Date: 20130627
  Serious: Yes (Disabling)
  Sender: FDA-Public Use
  Company Number: None

PATIENT
  Age: 75 Year
  Sex: Female
  Weight: 113.4 kg

DRUGS (1)
  1. ZYPREXA [Suspect]
     Indication: DEPRESSION
     Route: 048

REACTIONS (7)
  - Tremor [None]
  - Chills [None]
  - Feeling of body temperature change [None]
  - Deafness [None]
  - Visual acuity reduced [None]
  - Incontinence [None]
  - Refusal of treatment by patient [None]
